FAERS Safety Report 8602293-3 (Version None)
Quarter: 2012Q2

REPORT INFORMATION
  Report Type: 
  Country: None (occurrence: None)
  Receive Date: 20120423
  Receipt Date: 20080823
  Transmission Date: 20120825
  Serious: Yes (Hospitalization)
  Sender: FDA-Public Use
  Company Number: PHEH2008US06634

PATIENT
  Age: 66 Year
  Sex: Female

DRUGS (5)
  1. DIGOXIN [Concomitant]
  2. MULTIVITAMINS (ASCORBIC ACID, ERGOCALCIFEROL, FOLIC ACID, NICOTINAMIDE [Concomitant]
  3. BONIVA [Concomitant]
  4. FEMARA [Suspect]
     Indication: BREAST CANCER STAGE III
     Dosage: 25 MG, QD
     Dates: start: 20080703, end: 20080717
  5. TOPROL-XL [Concomitant]

REACTIONS (4)
  - PULMONARY EMBOLISM [None]
  - DEEP VEIN THROMBOSIS [None]
  - OEDEMA PERIPHERAL [None]
  - PAIN IN EXTREMITY [None]
